FAERS Safety Report 7418791-4 (Version None)
Quarter: 2011Q2

REPORT INFORMATION
  Report Type: 
  Country: None (occurrence: None)
  Receive Date: 20110407
  Receipt Date: 20110325
  Transmission Date: 20111010
  Serious: Yes (Other)
  Sender: FDA-Public Use
  Company Number: 2011SP013801

PATIENT

DRUGS (2)
  1. RADIOTHERAPY [Concomitant]
  2. TEMOZOLOMIDE [Suspect]
     Indication: GLIOMA
     Dosage: 90 MG/M2; QD, 200 MG/M2; QD

REACTIONS (3)
  - UNRESPONSIVE TO STIMULI [None]
  - INTRACRANIAL PRESSURE INCREASED [None]
  - TOXICITY TO VARIOUS AGENTS [None]
